FAERS Safety Report 9278637 (Version 1)
Quarter: 2013Q2

REPORT INFORMATION
  Report Type: Spontaneous
  Country: US (occurrence: US)
  Receive Date: 20130508
  Receipt Date: 20130508
  Transmission Date: 20140414
  Serious: No
  Sender: FDA-Public Use
  Company Number: US-PFIZER INC-2013141549

PATIENT
  Age: 46 Year
  Sex: Male

DRUGS (5)
  1. LYRICA [Suspect]
     Dosage: UNK
  2. EFFEXOR XR [Suspect]
     Dosage: UNK
  3. REMERON [Suspect]
     Dosage: UNK
  4. SIMVASTATIN [Suspect]
     Dosage: UNK
  5. VOLTAREN [Suspect]
     Dosage: UNK

REACTIONS (1)
  - Drug hypersensitivity [Unknown]
